FAERS Safety Report 4822512-9 (Version None)
Quarter: 2005Q4

REPORT INFORMATION
  Report Type: 
  Country: None (occurrence: None)
  Receive Date: 20051108
  Receipt Date: 20051027
  Transmission Date: 20060501
  Serious: Yes (Hospitalization, Other)
  Sender: FDA-Public Use
  Company Number: US-JNJFOC-20050902898

PATIENT
  Sex: Male
  Weight: 108.41 kg

DRUGS (12)
  1. INFLIXIMAB [Suspect]
     Indication: RHEUMATOID ARTHRITIS
     Route: 042
  2. PENTOXIFYLLINE [Concomitant]
  3. LISINOPRIL [Concomitant]
  4. ZOCOR [Concomitant]
  5. PROTONIX [Concomitant]
  6. FUROSEMIDE [Concomitant]
  7. GLUCOSAMINE [Concomitant]
  8. AMITRIPTYLINE HCL [Concomitant]
  9. FOLIC ACID [Concomitant]
  10. METHOTREXATE [Concomitant]
  11. POTASSIUM [Concomitant]
  12. ASPIRIN [Concomitant]

REACTIONS (2)
  - CLOSTRIDIUM COLITIS [None]
  - ILEUS [None]
